FAERS Safety Report 7692517-1 (Version None)
Quarter: 2011Q3

REPORT INFORMATION
  Report Type: 
  Country: None (occurrence: None)
  Receive Date: 20110819
  Receipt Date: 20110809
  Transmission Date: 20111222
  Serious: Yes (Hospitalization)
  Sender: FDA-Public Use
  Company Number: DE-MERCK-1106DEU00121

PATIENT
  Age: 63 Year
  Sex: Male
  Weight: 77 kg

DRUGS (4)
  1. ASPIRIN [Concomitant]
     Indication: CEREBRAL ISCHAEMIA
     Route: 048
     Dates: start: 20101101, end: 20101220
  2. RAMIPRIL [Suspect]
     Indication: HYPERTENSION
     Route: 048
     Dates: start: 20101101, end: 20101117
  3. LOSARTAN POTASSIUM [Concomitant]
     Indication: HYPERTENSION
     Route: 048
     Dates: start: 20101120, end: 20101220
  4. ZOCOR [Suspect]
     Indication: BLOOD CHOLESTEROL INCREASED
     Route: 048
     Dates: start: 20101101, end: 20101220

REACTIONS (4)
  - GAIT DISTURBANCE [None]
  - MYALGIA [None]
  - DEPRESSION [None]
  - BLOOD CREATINE PHOSPHOKINASE INCREASED [None]
